FAERS Safety Report 5619931-X (Version None)
Quarter: 2008Q1

REPORT INFORMATION
  Report Type: 
  Country: None (occurrence: None)
  Receive Date: 20080208
  Receipt Date: 20071008
  Transmission Date: 20080703
  Serious: No
  Sender: FDA-Public Use
  Company Number: US-ABBOTT-07P-163-0419945-00

PATIENT
  Sex: Male
  Weight: 86.26 kg

DRUGS (2)
  1. VICODIN [Suspect]
     Indication: BREAKTHROUGH PAIN
  2. FENTANYL TRANSDERMAL SYSTEM [Suspect]
     Indication: PAIN
     Route: 062
     Dates: start: 20070420

REACTIONS (3)
  - BREAKTHROUGH PAIN [None]
  - STOMACH DISCOMFORT [None]
  - WRONG TECHNIQUE IN DRUG USAGE PROCESS [None]
